FAERS Safety Report 6703551-X (Version None)
Quarter: 2010Q2

REPORT INFORMATION
  Report Type: 
  Country: None (occurrence: None)
  Receive Date: 20100430
  Receipt Date: 20100419
  Transmission Date: 20101027
  Serious: Yes (Other)
  Sender: FDA-Public Use
  Company Number: US-PFIZER INC-2010051542

PATIENT
  Sex: Male

DRUGS (2)
  1. GEMFIBROZIL [Suspect]
     Indication: BLOOD CHOLESTEROL
     Dosage: UNK
     Dates: end: 20020222
  2. GEMFIBROZIL [Suspect]
     Dosage: UNK
     Dates: start: 20020806

REACTIONS (2)
  - ANGINA PECTORIS [None]
  - HYPERSENSITIVITY [None]
